FAERS Safety Report 20614565 (Version 1)
Quarter: 2022Q1

REPORT INFORMATION
  Report Type: Report from Study
  Country: CA (occurrence: CA)
  Receive Date: 20220321
  Receipt Date: 20220321
  Transmission Date: 20220424
  Serious: Yes (Other)
  Sender: FDA-Public Use
  Company Number: CA-ABBVIE-22K-028-4271731-00

PATIENT
  Age: 54 Year
  Sex: Female

DRUGS (4)
  1. HUMIRA [Suspect]
     Active Substance: ADALIMUMAB
     Indication: Crohn^s disease
     Route: 058
     Dates: start: 20131031, end: 202202
  2. HUMIRA [Suspect]
     Active Substance: ADALIMUMAB
     Route: 058
     Dates: start: 202202, end: 2022
  3. HUMIRA [Suspect]
     Active Substance: ADALIMUMAB
     Route: 058
     Dates: start: 2022, end: 2022
  4. HUMIRA [Suspect]
     Active Substance: ADALIMUMAB
     Route: 058
     Dates: start: 2022

REACTIONS (14)
  - Renal failure [Unknown]
  - Feeling abnormal [Unknown]
  - Asthenia [Unknown]
  - Frequent bowel movements [Unknown]
  - Condition aggravated [Unknown]
  - Diabetes mellitus [Unknown]
  - Flatulence [Unknown]
  - Oropharyngeal pain [Unknown]
  - Herpes virus infection [Unknown]
  - Pyrexia [Recovered/Resolved]
  - Pain [Unknown]
  - SARS-CoV-2 test positive [Unknown]
  - Muscle spasms [Unknown]
  - Pneumonia [Recovered/Resolved]

NARRATIVE: CASE EVENT DATE: 20220101
